FAERS Safety Report 20102065 (Version 1)
Quarter: 2021Q4

REPORT INFORMATION
  Report Type: Spontaneous
  Country: US (occurrence: None)
  Receive Date: 20211122
  Receipt Date: 20211122
  Transmission Date: 20220303
  Serious: No
  Sender: FDA-Public Use
  Company Number: None

PATIENT
  Sex: Female

DRUGS (1)
  1. CYCLOPHOSPHAMIDE [Suspect]
     Active Substance: CYCLOPHOSPHAMIDE
     Indication: Lymphocytic leukaemia
     Dosage: OTHER FREQUENCY : MON / FRI WEEKLY;?
     Route: 048
     Dates: start: 20141127

REACTIONS (9)
  - Therapy interrupted [None]
  - Oedema peripheral [None]
  - Oedema peripheral [None]
  - Fall [None]
  - Scratch [None]
  - Cellulitis [None]
  - Sepsis [None]
  - Back pain [None]
  - Nephrolithiasis [None]
